APPROVED DRUG PRODUCT: LAMIVUDINE
Active Ingredient: LAMIVUDINE
Strength: 150MG
Dosage Form/Route: TABLET;ORAL
Application: A077464 | Product #001 | TE Code: AB
Applicant: AUROBINDO PHARMA LTD
Approved: Nov 21, 2016 | RLD: No | RS: No | Type: RX